FAERS Safety Report 6500068-2 (Version None)
Quarter: 2009Q4

REPORT INFORMATION
  Report Type: 
  Country: None (occurrence: None)
  Receive Date: 20091216
  Receipt Date: 20091207
  Transmission Date: 20100525
  Serious: Yes (Other)
  Sender: FDA-Public Use
  Company Number: US-JNJFOC-20090706869

PATIENT
  Sex: Female
  Weight: 68.95 kg

DRUGS (9)
  1. DURAGESIC-100 [Suspect]
     Indication: PAIN
     Route: 062
  2. DURAGESIC-100 [Suspect]
     Route: 062
  3. DURAGESIC-100 [Suspect]
     Indication: NEURALGIA
     Route: 062
  4. DURAGESIC-100 [Suspect]
     Route: 062
  5. HYDROCODONE [Concomitant]
     Indication: PAIN IN EXTREMITY
     Dosage: AS NEEDED
     Route: 048
  6. NEURONTIN [Concomitant]
     Route: 048
  7. PREMARIN [Concomitant]
     Indication: HORMONE LEVEL ABNORMAL
     Route: 048
  8. PAXIL [Concomitant]
     Indication: NEUROPATHY PERIPHERAL
     Route: 048
  9. AMBIEN [Concomitant]
     Indication: SLEEP DISORDER
     Route: 048

REACTIONS (9)
  - DRUG INEFFECTIVE [None]
  - DYSKINESIA [None]
  - GASTROOESOPHAGEAL REFLUX DISEASE [None]
  - HALLUCINATION [None]
  - HEADACHE [None]
  - INAPPROPRIATE SCHEDULE OF DRUG ADMINISTRATION [None]
  - PAIN IN EXTREMITY [None]
  - PRODUCT QUALITY ISSUE [None]
  - WITHDRAWAL SYNDROME [None]
